FAERS Safety Report 12336677 (Version 1)
Quarter: 2016Q2

REPORT INFORMATION
  Report Type: Spontaneous
  Country: US (occurrence: US)
  Receive Date: 20160505
  Receipt Date: 20160505
  Transmission Date: 20160815
  Serious: Yes (Death, Hospitalization, Other)
  Sender: FDA-Public Use
  Company Number: US-STRIDES ARCOLAB LIMITED-2016SP001857

PATIENT

DRUGS (2)
  1. PREDNISOLONE. [Suspect]
     Active Substance: PREDNISOLONE
     Indication: IMMUNOSUPPRESSION
     Dosage: UNK
  2. TACROLIMUS. [Suspect]
     Active Substance: TACROLIMUS
     Indication: IMMUNOSUPPRESSION
     Dosage: UNK

REACTIONS (12)
  - Crying [Unknown]
  - Affect lability [Unknown]
  - Memory impairment [Unknown]
  - Tearfulness [Unknown]
  - Visual impairment [Unknown]
  - Hemianopia [Unknown]
  - Facial paresis [Unknown]
  - Progressive multifocal leukoencephalopathy [Fatal]
  - Muscular weakness [Unknown]
  - Cognitive disorder [Unknown]
  - Respiratory failure [Fatal]
  - Infection reactivation [Not Recovered/Not Resolved]
